FAERS Safety Report 13351423 (Version 1)
Quarter: 2017Q1

REPORT INFORMATION
  Report Type: Spontaneous
  Country: US (occurrence: US)
  Receive Date: 20170320
  Receipt Date: 20170320
  Transmission Date: 20170429
  Serious: Yes (Hospitalization, Other)
  Sender: FDA-Public Use
  Company Number: US-PFIZER INC-2017112896

PATIENT
  Age: 60 Year
  Sex: Female
  Weight: 132 kg

DRUGS (8)
  1. METFORMIN [Concomitant]
     Active Substance: METFORMIN HYDROCHLORIDE
     Indication: TYPE 2 DIABETES MELLITUS
     Dosage: 1000 MG, DAILY
  2. ALPRAZOLAM. [Suspect]
     Active Substance: ALPRAZOLAM
     Dosage: 2 MG, 3X/DAY
     Dates: start: 201703
  3. ALPRAZOLAM. [Suspect]
     Active Substance: ALPRAZOLAM
     Indication: ANXIETY
     Dosage: 2 MG, 4X/DAY
     Dates: start: 2010, end: 2017
  4. MIRTAZAPINE. [Concomitant]
     Active Substance: MIRTAZAPINE
     Indication: SLEEP DISORDER
     Dosage: 15 MG, 1X/DAY (AT BEDTIME)
  5. ALPRAZOLAM. [Suspect]
     Active Substance: ALPRAZOLAM
     Dosage: 1 MG, 4X/DAY
     Dates: start: 2017, end: 201703
  6. ALPRAZOLAM. [Suspect]
     Active Substance: ALPRAZOLAM
     Indication: AGORAPHOBIA
     Dosage: 0.5 MG, 4X/DAY
     Dates: start: 2017, end: 2017
  7. LISINOPRIL. [Concomitant]
     Active Substance: LISINOPRIL
     Indication: BLOOD PRESSURE MEASUREMENT
     Dosage: 10 MG, DAILY
  8. KEPPRA [Concomitant]
     Active Substance: LEVETIRACETAM
     Indication: SEIZURE
     Dosage: UNK
     Dates: start: 2013

REACTIONS (15)
  - Seizure [Unknown]
  - Feeling of despair [Unknown]
  - Fall [Recovered/Resolved]
  - Urinary tract infection [Unknown]
  - Decreased appetite [Unknown]
  - Thrombosis [Unknown]
  - Weight decreased [Unknown]
  - Cellulitis [Unknown]
  - Suicidal ideation [Unknown]
  - Memory impairment [Recovered/Resolved]
  - Intentional product misuse [Unknown]
  - Petit mal epilepsy [Recovered/Resolved]
  - Generalised tonic-clonic seizure [Recovered/Resolved]
  - Blood potassium decreased [Recovered/Resolved]
  - Meningioma [Unknown]

NARRATIVE: CASE EVENT DATE: 2013
